FAERS Safety Report 9009169 (Version 1)
Quarter: 2013Q1

REPORT INFORMATION
  Report Type: Report from Study
  Country: US (occurrence: US)
  Receive Date: 20130111
  Receipt Date: 20130111
  Transmission Date: 20140127
  Serious: Yes (Hospitalization)
  Sender: FDA-Public Use
  Company Number: US-ROCHE-1178201

PATIENT
  Sex: Female

DRUGS (3)
  1. TOCILIZUMAB [Suspect]
     Indication: RHEUMATOID ARTHRITIS
     Route: 042
     Dates: start: 20120301
  2. TOCILIZUMAB [Suspect]
     Route: 042
     Dates: start: 20120401
  3. TOCILIZUMAB [Suspect]
     Route: 042
     Dates: start: 20120501

REACTIONS (1)
  - Necrosis [Recovering/Resolving]
